FAERS Safety Report 23878543 (Version 1)
Quarter: 2024Q2

REPORT INFORMATION
  Report Type: Spontaneous
  Country: US (occurrence: None)
  Receive Date: 20240520
  Receipt Date: 20240520
  Transmission Date: 20240716
  Serious: Yes (Other)
  Sender: FDA-Public Use
  Company Number: None

PATIENT
  Age: 59 Year
  Sex: 0
  Weight: 56.7 kg

DRUGS (31)
  1. PYRIMETHAMINE [Suspect]
     Active Substance: PYRIMETHAMINE
     Indication: Eye infection toxoplasmal
     Dosage: OTHER QUANTITY : 60 TABLET(S)?OTHER FREQUENCY : 1 DOSE = 50MG?
     Route: 048
     Dates: start: 20240415, end: 20240415
  2. LEUCOVORIN [Suspect]
     Active Substance: LEUCOVORIN\LEUCOVORIN CALCIUM
     Indication: Myelosuppression
     Dosage: 2 TABLETS ONCE 10MG OTHER ORAL
     Route: 048
     Dates: start: 20240415, end: 20240415
  3. LEVOTHYROXINE [Concomitant]
     Active Substance: LEVOTHYROXINE\LEVOTHYROXINE SODIUM
  4. LIOTHYRONNE SR [Concomitant]
  5. LISINOPRIL [Concomitant]
     Active Substance: LISINOPRIL
  6. SPIRONOLACTONE [Concomitant]
     Active Substance: SPIRONOLACTONE
  7. NALTREXONE [Concomitant]
     Active Substance: NALTREXONE
  8. PROGESTERONE [Concomitant]
     Active Substance: PROGESTERONE
  9. METFORMIN [Concomitant]
     Active Substance: METFORMIN HYDROCHLORIDE
  10. ESTRADIOL [Concomitant]
     Active Substance: ESTRADIOL
  11. HERBALS [Concomitant]
     Active Substance: HERBALS
  12. PROBIOTICS NOS [Concomitant]
     Active Substance: PROBIOTICS NOS
  13. VITAMIN B COMPLEX [Concomitant]
     Active Substance: CYANOCOBALAMIN\DEXPANTHENOL\NIACINAMIDE\PYRIDOXINE HYDROCHLORIDE\RIBOFLAVIN 5^-PHOSPHATE SODIUM\THIA
  14. VIT D3/K2 [Concomitant]
  15. MACUGUARD [Concomitant]
  16. PRASTERONE [Concomitant]
     Active Substance: PRASTERONE
  17. DIETARY SUPPLEMENT\RESVERATROL [Concomitant]
     Active Substance: DIETARY SUPPLEMENT\RESVERATROL
  18. VITAMIN C [Concomitant]
     Active Substance: ASCORBIC ACID
  19. BERBERINE [Concomitant]
     Active Substance: BERBERINE
  20. ZYPAN [Concomitant]
  21. FISH OIL\OMEGA-3 FATTY ACIDS [Concomitant]
     Active Substance: FISH OIL\OMEGA-3 FATTY ACIDS
  22. MAGNESIIUM [Concomitant]
  23. QUERCETIN [Concomitant]
     Active Substance: QUERCETIN
  24. ASTAXANTHIN [Concomitant]
     Active Substance: ASTAXANTHIN
  25. PREGNENOLONE [Concomitant]
     Active Substance: PREGNENOLONE
  26. 5-HTP [Concomitant]
  27. HERBATONIN [Concomitant]
  28. CBD/CBN [Concomitant]
  29. UNSPECIFIED INGREDIENT [Concomitant]
     Active Substance: UNSPECIFIED INGREDIENT
  30. LIPASE [Concomitant]
     Active Substance: LIPASE
  31. WHEAT RESCUE [Concomitant]

REACTIONS (11)
  - Heart rate increased [None]
  - Nausea [None]
  - Feeling of body temperature change [None]
  - Head discomfort [None]
  - Hyperhidrosis [None]
  - Dry mouth [None]
  - Paraesthesia [None]
  - Paraesthesia oral [None]
  - Dysgeusia [None]
  - Chills [None]
  - Lethargy [None]

NARRATIVE: CASE EVENT DATE: 20240415
